FAERS Safety Report 5022946-6 (Version None)
Quarter: 2006Q2

REPORT INFORMATION
  Report Type: 
  Country: None (occurrence: None)
  Receive Date: 20060426
  Receipt Date: 20060315
  Transmission Date: 20061013
  Serious: Yes (Other)
  Sender: FDA-Public Use
  Company Number: 2006038528

PATIENT
  Age: 76 Year
  Sex: Female
  Weight: 73.4827 kg

DRUGS (7)
  1. LYRICA [Suspect]
     Indication: NEUROPATHY PERIPHERAL
     Dosage: 50 MG (50 MG, 1 IN 1 D), ORAL
     Route: 048
     Dates: start: 20050305, end: 20050314
  2. DIOVAN [Concomitant]
  3. PREVACID [Concomitant]
  4. LIPITOR [Concomitant]
  5. NIACIN [Concomitant]
  6. VITAMINS (VITAMINS) [Concomitant]
  7. VITAMIN C (VITAMIN C) [Concomitant]

REACTIONS (5)
  - AGITATION [None]
  - BLOOD PRESSURE INCREASED [None]
  - DRY EYE [None]
  - HEADACHE [None]
  - TINNITUS [None]
